FAERS Safety Report 6785257-4 (Version None)
Quarter: 2010Q2

REPORT INFORMATION
  Report Type: 
  Country: None (occurrence: None)
  Receive Date: 20100622
  Receipt Date: 20100611
  Transmission Date: 20101027
  Serious: Yes (Other)
  Sender: FDA-Public Use
  Company Number: AU-BRISTOL-MYERS SQUIBB COMPANY-15154503

PATIENT
  Age: 36 Year
  Sex: Male

DRUGS (4)
  1. EFAVIRENZ [Suspect]
     Indication: PLATELET COUNT DECREASED
     Dates: start: 20060101
  2. TENOFOVIR [Suspect]
     Indication: PLATELET COUNT DECREASED
     Dates: start: 20060101
  3. LAMIVUDINE [Suspect]
     Indication: PLATELET COUNT DECREASED
     Dates: start: 20060101
  4. TRUVADA [Suspect]
     Indication: PLATELET COUNT DECREASED
     Dosage: CHANGED THE TREATMENT IN 2007
     Dates: start: 20070101

REACTIONS (4)
  - ALANINE AMINOTRANSFERASE INCREASED [None]
  - HEPATIC CIRRHOSIS [None]
  - HEPATITIS C [None]
  - SYPHILIS [None]
